FAERS Safety Report 9209584 (Version 1)
Quarter: 2013Q2

REPORT INFORMATION
  Report Type: Other
  Country: GB (occurrence: GB)
  Receive Date: 20130404
  Receipt Date: 20130404
  Transmission Date: 20140414
  Serious: Yes (Hospitalization)
  Sender: FDA-Public Use
  Company Number: GB-BRISTOL-MYERS SQUIBB COMPANY-18713784

PATIENT
  Age: 37 Year
  Sex: Male

DRUGS (3)
  1. CISPLATIN [Suspect]
     Indication: GERM CELL CANCER
  2. ETOPOSIDE [Concomitant]
     Indication: GERM CELL CANCER
  3. BLEOMYCIN [Concomitant]
     Indication: GERM CELL CANCER

REACTIONS (2)
  - Ischaemic stroke [Recovered/Resolved]
  - Carotid artery dissection [Unknown]
